FAERS Safety Report 25643141 (Version 1)
Quarter: 2025Q3

REPORT INFORMATION
  Report Type: Spontaneous
  Country: CN (occurrence: CN)
  Receive Date: 20250805
  Receipt Date: 20250805
  Transmission Date: 20251020
  Serious: Yes (Hospitalization)
  Sender: Unknown Manufacturer
  Company Number: CN-ASTRAZENECA-202507CHN022876CN

PATIENT

DRUGS (1)
  1. METOPROLOL SUCCINATE [Suspect]
     Active Substance: METOPROLOL SUCCINATE
     Indication: Hypertension
     Dosage: 23.75 MILLIGRAM, QD
     Route: 048
     Dates: start: 20240224, end: 20250707

REACTIONS (1)
  - Nodal rhythm [Recovering/Resolving]

NARRATIVE: CASE EVENT DATE: 20250707
